FAERS Safety Report 24590307 (Version 3)
Quarter: 2024Q4

REPORT INFORMATION
  Report Type: Report from Study
  Country: US (occurrence: US)
  Receive Date: 20241107
  Receipt Date: 20241204
  Transmission Date: 20250114
  Serious: Yes (Hospitalization, Other)
  Sender: ABBVIE
  Company Number: US-ABBVIE-5993287

PATIENT
  Age: 27 Year
  Sex: Female
  Weight: 66 kg

DRUGS (4)
  1. CREON [Suspect]
     Active Substance: PANCRELIPASE AMYLASE\PANCRELIPASE LIPASE\PANCRELIPASE PROTEASE
     Indication: Pancreatic failure
     Dosage: FORM STRENGTH: 6000 UNIT?FREQUENCY TEXT: 3 CAPS EACH MEAL, 1 PER SNACK
     Route: 048
     Dates: start: 2009
  2. CREON [Suspect]
     Active Substance: PANCRELIPASE AMYLASE\PANCRELIPASE LIPASE\PANCRELIPASE PROTEASE
     Indication: Pancreatic failure
     Route: 048
     Dates: start: 1999
  3. GABAPENTIN AN [Concomitant]
     Indication: Neuralgia
  4. PROMETHAZINE [Concomitant]
     Active Substance: PROMETHAZINE HYDROCHLORIDE
     Indication: Nausea

REACTIONS (4)
  - Pancreatitis [Recovered/Resolved]
  - Pancreatitis chronic [Not Recovered/Not Resolved]
  - Lipase increased [Unknown]
  - Pancreatitis [Recovered/Resolved]

NARRATIVE: CASE EVENT DATE: 19990101
